FAERS Safety Report 5964478-4 (Version None)
Quarter: 2008Q4

REPORT INFORMATION
  Report Type: 
  Country: None (occurrence: None)
  Receive Date: 20081121
  Receipt Date: 20081121
  Transmission Date: 20090506
  Serious: Yes (Other)
  Sender: FDA-Public Use
  Company Number: None

PATIENT
  Age: 27 Year
  Sex: Female
  Weight: 57.1532 kg

DRUGS (2)
  1. CIPROFLOXACIN [Suspect]
     Indication: URINARY TRACT INFECTION
     Dosage: 1 TABLET 2 TIMES DAILY EVERY 12 HRS
     Dates: start: 20081028, end: 20081031
  2. UTIRA-C PROFESSIONAL SAMPLES [Suspect]
     Indication: URINARY TRACT INFECTION
     Dosage: 1 TABLET 4 TIMES DAILY EVERY 4 HRS.
     Dates: start: 20081027, end: 20081029

REACTIONS (4)
  - ABDOMINAL PAIN UPPER [None]
  - FEELING ABNORMAL [None]
  - GROIN PAIN [None]
  - PAIN IN EXTREMITY [None]
